FAERS Safety Report 14975534 (Version 4)
Quarter: 2018Q3

REPORT INFORMATION
  Report Type: Spontaneous
  Country: PL (occurrence: PL)
  Receive Date: 20180605
  Receipt Date: 20180920
  Transmission Date: 20181010
  Serious: Yes (Death, Other)
  Sender: FDA-Public Use
  Company Number: PL-ALEXION PHARMACEUTICALS INC.-A201806819

PATIENT
  Age: 63 Year
  Sex: Female
  Weight: 73 kg

DRUGS (7)
  1. AMPICILLIN [Concomitant]
     Active Substance: AMPICILLIN
     Indication: ANTIBIOTIC THERAPY
     Dosage: UNK
     Route: 065
  2. CEFUROXIME. [Concomitant]
     Active Substance: CEFUROXIME
     Indication: ANTIBIOTIC THERAPY
     Dosage: UNK
     Route: 065
  3. MEROPENEM. [Concomitant]
     Active Substance: MEROPENEM
     Indication: ANTIBIOTIC THERAPY
     Dosage: NR
     Route: 065
  4. SOLIRIS [Suspect]
     Active Substance: ECULIZUMAB
     Indication: ATYPICAL HAEMOLYTIC URAEMIC SYNDROME
     Dosage: 900 MG, QW
     Route: 042
     Dates: start: 20180425, end: 20180516
  5. SOLIRIS [Suspect]
     Active Substance: ECULIZUMAB
     Dosage: 900 MG, QW
     Route: 042
     Dates: start: 20180502
  6. SOLIRIS [Suspect]
     Active Substance: ECULIZUMAB
     Dosage: 900 MG, QW
     Route: 042
     Dates: start: 20180516, end: 20180516
  7. SOLIRIS [Suspect]
     Active Substance: ECULIZUMAB
     Dosage: 900 MG, QW
     Route: 042
     Dates: start: 20180509

REACTIONS (12)
  - Pulmonary alveolar haemorrhage [Fatal]
  - Unresponsive to stimuli [Unknown]
  - Drug ineffective [Unknown]
  - Condition aggravated [Unknown]
  - Dyskinesia [Unknown]
  - C-reactive protein increased [Unknown]
  - Retrograde amnesia [Unknown]
  - Neurological infection [Unknown]
  - Disorientation [Unknown]
  - Thrombotic microangiopathy [Fatal]
  - Procalcitonin increased [Unknown]
  - Confusional state [Unknown]

NARRATIVE: CASE EVENT DATE: 20180522
